FAERS Safety Report 5870160-4 (Version None)
Quarter: 2008Q3

REPORT INFORMATION
  Report Type: 
  Country: None (occurrence: None)
  Receive Date: 20080904
  Receipt Date: 20080822
  Transmission Date: 20090109
  Serious: Yes (Other)
  Sender: FDA-Public Use
  Company Number: US-PFIZER INC-2008070773

PATIENT
  Age: 28 Year
  Sex: Male
  Weight: 90.9 kg

DRUGS (2)
  1. NEURONTIN [Suspect]
     Indication: NEURALGIA
  2. LYRICA [Suspect]
     Indication: NEURALGIA
     Route: 048

REACTIONS (1)
  - PARTIAL SEIZURES [None]
